FAERS Safety Report 25444378 (Version 2)
Quarter: 2025Q4

REPORT INFORMATION
  Report Type: Spontaneous
  Country: US (occurrence: None)
  Receive Date: 20250617
  Receipt Date: 20251027
  Transmission Date: 20260117
  Serious: No
  Sender: UCB
  Company Number: US-UCBSA-2025025420

PATIENT
  Age: 44 Year

DRUGS (2)
  1. BIMZELX [Suspect]
     Active Substance: BIMEKIZUMAB-BKZX
     Indication: Psoriasis
     Dosage: 320 MILLIGRAM, EV 4 WEEKS (ONCE EVERY 4 WEEKS FOR 16 WEEKS (WEEKS 0, 4, 8, 12, AND 16) THEN 1 PEN EVERY 8 WEEKS THEREA)FTER
  2. DOXYCYCLINE [Suspect]
     Active Substance: DOXYCYCLINE
     Indication: Product used for unknown indication
     Dosage: UNK

REACTIONS (3)
  - Urticaria [Unknown]
  - Petechiae [Unknown]
  - Hypersensitivity [Unknown]
